FAERS Safety Report 16031872 (Version 1)
Quarter: 2019Q1

REPORT INFORMATION
  Report Type: Spontaneous
  Country: US (occurrence: US)
  Receive Date: 20190304
  Receipt Date: 20190304
  Transmission Date: 20190418
  Serious: No
  Sender: FDA-Public Use
  Company Number: US-PFIZER INC-2019081122

PATIENT
  Age: 72 Year
  Sex: Female
  Weight: 88 kg

DRUGS (5)
  1. XGEVA [Concomitant]
     Active Substance: DENOSUMAB
     Dosage: 120 MG, UNK, (120 MG ONCE)
     Dates: start: 2019
  2. VITAMIN E [Concomitant]
     Active Substance: .ALPHA.-TOCOPHEROL
     Dosage: 1000 MG, 2X/DAY
  3. FASLODEX [Concomitant]
     Active Substance: FULVESTRANT
     Indication: BREAST CANCER FEMALE
     Dosage: 250 MG, SHOTS, ONE IN EACH HIP
     Dates: start: 2018
  4. IBRANCE [Suspect]
     Active Substance: PALBOCICLIB
     Indication: BREAST CANCER
     Dosage: 100 MG, CYCLIC [21 DAYS THEN OFF 7 DAYS ]
     Route: 048
     Dates: start: 201812
  5. BIOTIN [Concomitant]
     Active Substance: BIOTIN
     Dosage: 1000 MG, 2X/DAY

REACTIONS (9)
  - Dry skin [Not Recovered/Not Resolved]
  - Lymphoedema [Unknown]
  - Hormone level abnormal [Unknown]
  - Alopecia [Not Recovered/Not Resolved]
  - Condition aggravated [Not Recovered/Not Resolved]
  - Skin wrinkling [Unknown]
  - Feeling abnormal [Unknown]
  - Fatigue [Unknown]
  - Skin exfoliation [Unknown]

NARRATIVE: CASE EVENT DATE: 2018
